FAERS Safety Report 9113805 (Version 3)
Quarter: 2013Q4

REPORT INFORMATION
  Report Type: Report from Study
  Country: MX (occurrence: MX)
  Receive Date: 20130208
  Receipt Date: 20131203
  Transmission Date: 20140711
  Serious: Yes (Hospitalization)
  Sender: FDA-Public Use
  Company Number: MX-BRISTOL-MYERS SQUIBB COMPANY-16365546

PATIENT
  Age: 32 Year
  Sex: Male
  Weight: 77 kg

DRUGS (3)
  1. ERBITUX [Suspect]
     Indication: SQUAMOUS CELL CARCINOMA OF HEAD AND NECK
     Dosage: 5DEC-5DEC11-400MG/M2:1DAY?13DEC11-ONG-250MG/M2-D8+D15?LAST PRIOR DS:29DEC11
     Route: 042
     Dates: start: 20111205
  2. CISPLATIN [Suspect]
     Indication: SQUAMOUS CELL CARCINOMA OF HEAD AND NECK
     Dosage: D1 LAST DOSE:5DEC11; UNKNOWN DOSE FROM 2FEB12, CYC 2 STOPPED,RESTARTED 4FEB12
     Route: 042
     Dates: start: 20111205, end: 2012
  3. 5-FLUOROURACIL [Suspect]
     Indication: SQUAMOUS CELL CARCINOMA OF HEAD AND NECK
     Dosage: D1-4?LAST PRIOR DS:8DEC11, UNKNOWN DOSE FROM 2FEB12.  CYC 2 STOPPED AND RESTARTED ON 4FEB12
     Route: 042
     Dates: start: 20111205, end: 2012

REACTIONS (2)
  - Tumour necrosis [Not Recovered/Not Resolved]
  - Neck pain [Recovered/Resolved]
